FAERS Safety Report 9559371 (Version 1)
Quarter: 2013Q3

REPORT INFORMATION
  Report Type: Spontaneous
  Country: US (occurrence: None)
  Receive Date: 20130906
  Receipt Date: 20130906
  Transmission Date: 20140515
  Serious: No
  Sender: FDA-Public Use
  Company Number: 163-POMAL-13074787

PATIENT
  Age: 50 Year
  Sex: Male

DRUGS (3)
  1. POMALYST (POMALIDOMIDE) (4 MILLIGRAM, CAPSULES) [Suspect]
     Route: 048
     Dates: start: 20130723
  2. ASPIRIN (UNKNOWN) [Concomitant]
  3. DECADRON [Suspect]

REACTIONS (2)
  - Somnolence [None]
  - Fatigue [None]
